FAERS Safety Report 20821373 (Version 1)
Quarter: 2022Q2

REPORT INFORMATION
  Report Type: Spontaneous
  Country: US (occurrence: US)
  Receive Date: 20220512
  Receipt Date: 20220512
  Transmission Date: 20220721
  Serious: No
  Sender: FDA-Public Use
  Company Number: US-PFIZER INC-202200318329

PATIENT
  Age: 45 Year
  Sex: Female

DRUGS (18)
  1. XELJANZ XR [Suspect]
     Active Substance: TOFACITINIB CITRATE
     Dosage: 11 MG, DAILY
     Route: 048
     Dates: start: 2019
  2. VYVANSE [Concomitant]
     Active Substance: LISDEXAMFETAMINE DIMESYLATE
  3. ROSUVASTATIN [Concomitant]
     Active Substance: ROSUVASTATIN
  4. LOSARTAN POTASSIUM [Concomitant]
     Active Substance: LOSARTAN POTASSIUM
  5. METAXALONE [Concomitant]
     Active Substance: METAXALONE
  6. CELECOXIB [Concomitant]
     Active Substance: CELECOXIB
  7. BUPROPION [Concomitant]
     Active Substance: BUPROPION
  8. VERAPAMIL [Concomitant]
     Active Substance: VERAPAMIL HYDROCHLORIDE
  9. DEXAMETHASONE [Concomitant]
     Active Substance: DEXAMETHASONE
  10. METHOCARBAMOL [Concomitant]
     Active Substance: METHOCARBAMOL
  11. BUDESONIDE [Concomitant]
     Active Substance: BUDESONIDE
  12. PREDNISONE [Concomitant]
     Active Substance: PREDNISONE
  13. AZITHROMYCIN [Concomitant]
     Active Substance: AZITHROMYCIN
  14. BENZONATATE [Concomitant]
     Active Substance: BENZONATATE
  15. ONDANSETRON [Concomitant]
     Active Substance: ONDANSETRON
  16. MONTELUKAST [Concomitant]
     Active Substance: MONTELUKAST SODIUM
  17. ALBUTEROL SULFATE [Concomitant]
     Active Substance: ALBUTEROL SULFATE
  18. METHYLPREDNISOLONE [Concomitant]
     Active Substance: METHYLPREDNISOLONE

REACTIONS (4)
  - COVID-19 [Unknown]
  - Influenza [Unknown]
  - Bronchitis [Unknown]
  - Pain [Unknown]

NARRATIVE: CASE EVENT DATE: 20220101
